FAERS Safety Report 25422491 (Version 1)
Quarter: 2025Q2

REPORT INFORMATION
  Report Type: Spontaneous
  Country: US (occurrence: None)
  Receive Date: 20250610
  Receipt Date: 20250610
  Transmission Date: 20250716
  Serious: Yes (Hospitalization)
  Sender: FDA-CTU
  Company Number: None

PATIENT
  Age: 60 Year
  Sex: Male
  Weight: 151 kg

DRUGS (1)
  1. XARELTO [Suspect]
     Active Substance: RIVAROXABAN
     Indication: Atrial fibrillation
     Dosage: 20.00 MG DAILY ORAL ?
     Route: 048
     Dates: start: 20240815

REACTIONS (2)
  - Gastrointestinal haemorrhage [None]
  - Large intestinal ulcer haemorrhage [None]

NARRATIVE: CASE EVENT DATE: 20250205
